FAERS Safety Report 8791472 (Version 1)
Quarter: 2012Q4

REPORT INFORMATION
  Report Type: Spontaneous
  Country: US (occurrence: None)
  Receive Date: 20120911
  Receipt Date: 20120911
  Transmission Date: 20130627
  Serious: Yes (Hospitalization)
  Sender: FDA-Public Use
  Company Number: TPA2012A06199

PATIENT
  Sex: Female

DRUGS (2)
  1. EDARBYCLOR [Suspect]
     Indication: HYPERTENSION
  2. UNKNOWN MEDICATIONS [Concomitant]

REACTIONS (1)
  - Hyponatraemia [None]
